FAERS Safety Report 6730434-1 (Version None)
Quarter: 2010Q2

REPORT INFORMATION
  Report Type: 
  Country: None (occurrence: None)
  Receive Date: 20100518
  Receipt Date: 20100511
  Transmission Date: 20101027
  Serious: Yes (Other)
  Sender: FDA-Public Use
  Company Number: B0652243A

PATIENT
  Age: 38 Year
  Sex: Female

DRUGS (2)
  1. AUGMENTIN '125' [Suspect]
     Indication: PROPHYLAXIS
     Route: 042
     Dates: start: 20100426, end: 20100426
  2. SYNTOCINON [Concomitant]
     Route: 042
     Dates: start: 20100426, end: 20100426

REACTIONS (1)
  - HYPOTENSION [None]
